FAERS Safety Report 8261270-5 (Version None)
Quarter: 2012Q2

REPORT INFORMATION
  Report Type: 
  Country: None (occurrence: None)
  Receive Date: 20120405
  Receipt Date: 20120402
  Transmission Date: 20120825
  Serious: Yes (Other)
  Sender: FDA-Public Use
  Company Number: US-JNJFOC-20120307152

PATIENT
  Sex: Male
  Weight: 99.79 kg

DRUGS (12)
  1. NOVOLIN N [Concomitant]
     Indication: DIABETES MELLITUS
  2. MULTI-VITAMINS [Concomitant]
     Indication: NUTRITIONAL SUPPORT
  3. DIOVAN HCT [Concomitant]
     Indication: HYPERTENSION
  4. ASPIRIN [Concomitant]
     Indication: PRODUCT USED FOR UNKNOWN INDICATION
  5. LASIX [Concomitant]
     Indication: DIURETIC THERAPY
     Route: 048
  6. COMBIGAN [Concomitant]
     Indication: ABNORMAL SENSATION IN EYE
     Route: 031
  7. STELARA [Suspect]
     Indication: PSORIASIS
     Route: 058
     Dates: start: 20120201
  8. NOVOLOG [Concomitant]
     Indication: DIABETES MELLITUS
  9. LOPRESSOR [Concomitant]
     Indication: CARDIAC DISORDER
     Route: 048
  10. CELEBREX [Concomitant]
     Indication: ARTHRITIS
     Route: 048
  11. TIMOLOL MALEATE [Concomitant]
     Indication: PRODUCT USED FOR UNKNOWN INDICATION
  12. ZOLOFT [Concomitant]
     Indication: PRODUCT USED FOR UNKNOWN INDICATION

REACTIONS (5)
  - PHOTOPHOBIA [None]
  - WEIGHT INCREASED [None]
  - BLOOD GLUCOSE INCREASED [None]
  - PSORIASIS [None]
  - DRUG INEFFECTIVE [None]
